FAERS Safety Report 7975400-3 (Version None)
Quarter: 2011Q4

REPORT INFORMATION
  Report Type: 
  Country: None (occurrence: None)
  Receive Date: 20111213
  Receipt Date: 20110927
  Transmission Date: 20120403
  Serious: No
  Sender: FDA-Public Use
  Company Number: US-AMGEN-USASP2011049918

PATIENT
  Sex: Female

DRUGS (15)
  1. ENBREL [Suspect]
     Indication: ANKYLOSING SPONDYLITIS
     Dosage: 50 MG, QWK
     Dates: start: 20110901
  2. FISH OIL [Concomitant]
  3. FOLIC ACID [Concomitant]
  4. METHOTREXATE [Concomitant]
     Dosage: UNK
  5. MULTI-VITAMINS [Concomitant]
  6. VITAMIN D [Concomitant]
  7. COQ10 [Concomitant]
  8. SYNTHROID [Concomitant]
  9. BENAZEPRIL + HIDROCLOROTIAZIDA GENERIS [Concomitant]
  10. PREDNISONE TAB [Concomitant]
     Dosage: UNK
  11. SILYBUM MARIANUM [Concomitant]
  12. MAGNESIUM SULFATE [Concomitant]
  13. SIMVASTATIN [Concomitant]
  14. CALCIUM [Concomitant]
  15. CITALOPRAM [Concomitant]

REACTIONS (2)
  - INJECTION SITE ERYTHEMA [None]
  - THERAPEUTIC RESPONSE DECREASED [None]
